FAERS Safety Report 15118552 (Version 4)
Quarter: 2019Q1

REPORT INFORMATION
  Report Type: Spontaneous
  Country: GB (occurrence: GB)
  Receive Date: 20180709
  Receipt Date: 20190108
  Transmission Date: 20190417
  Serious: Yes (Other)
  Sender: FDA-Public Use
  Company Number: GB-BRISTOL-MYERS SQUIBB COMPANY-BMS-2018-063382

PATIENT
  Age: 52 Year
  Sex: Male

DRUGS (1)
  1. ENTECAVIR. [Suspect]
     Active Substance: ENTECAVIR
     Indication: ACUTE HEPATITIS B
     Dosage: 0.5 MG, QD
     Route: 048

REACTIONS (1)
  - Retinal toxicity [Recovered/Resolved]
